FAERS Safety Report 17312829 (Version 2)
Quarter: 2020Q1

REPORT INFORMATION
  Report Type: Spontaneous
  Country: DE (occurrence: DE)
  Receive Date: 20200123
  Receipt Date: 20200204
  Transmission Date: 20200409
  Serious: Yes (Other)
  Sender: FDA-Public Use
  Company Number: DE-AUROBINDO-AUR-APL-2020-003378

PATIENT
  Age: 53 Year
  Sex: Male
  Weight: 85 kg

DRUGS (2)
  1. TERBINAFINE PUREN 250 MG TABLET [Suspect]
     Active Substance: TERBINAFINE
     Indication: ONYCHOMYCOSIS
     Dosage: 250 MILLIGRAM, DAILY FOR ONE WEEK
     Route: 048
     Dates: start: 201907, end: 201907
  2. TERBINAFINE PUREN 250 MG TABLET [Suspect]
     Active Substance: TERBINAFINE
     Dosage: 250 MILLIGRAM, TWICE WEEKLY
     Route: 048
     Dates: start: 201907

REACTIONS (2)
  - Erectile dysfunction [Not Recovered/Not Resolved]
  - Inappropriate schedule of product administration [Unknown]

NARRATIVE: CASE EVENT DATE: 201909
